FAERS Safety Report 9302341 (Version 1)
Quarter: 2013Q2

REPORT INFORMATION
  Report Type: Spontaneous
  Country: GB (occurrence: None)
  Receive Date: 20130517
  Receipt Date: 20130517
  Transmission Date: 20140414
  Serious: Yes (Hospitalization)
  Sender: FDA-Public Use
  Company Number: 148075

PATIENT
  Sex: Male

DRUGS (1)
  1. AZATHIOPRINE SODIUM [Suspect]
     Indication: AUTOIMMUNE HEPATITIS
     Dosage: 3.2MG/KG/DAY

REACTIONS (2)
  - Jaundice cholestatic [None]
  - Autoimmune hepatitis [None]
